FAERS Safety Report 7642400-2 (Version None)
Quarter: 2011Q3

REPORT INFORMATION
  Report Type: 
  Country: None (occurrence: None)
  Receive Date: 20110728
  Receipt Date: 20100701
  Transmission Date: 20111222
  Serious: No
  Sender: FDA-Public Use
  Company Number: US-MYLANLABS-2010S1011984

PATIENT
  Age: 4 Decade
  Sex: Female

DRUGS (2)
  1. LEVOTHYROXINE SODIUM [Suspect]
     Indication: HYPOTHYROIDISM
     Route: 048
     Dates: end: 20100104
  2. SYNTHROID [Suspect]
     Indication: HYPOTHYROIDISM
     Route: 048
     Dates: start: 19930101

REACTIONS (3)
  - RASH [None]
  - HYPERSENSITIVITY [None]
  - BLISTER [None]
